FAERS Safety Report 24290956 (Version 2)
Quarter: 2024Q3

REPORT INFORMATION
  Report Type: Report from Study
  Country: CO (occurrence: CO)
  Receive Date: 20240906
  Receipt Date: 20240913
  Transmission Date: 20241017
  Serious: Yes (Death)
  Sender: ASTELLAS
  Company Number: CO-ASTELLAS-2024-AER-004455

PATIENT
  Age: 55 Year
  Sex: Female

DRUGS (1)
  1. TACROLIMUS [Suspect]
     Active Substance: TACROLIMUS
     Indication: Renal transplant
     Route: 048
     Dates: start: 20230823

REACTIONS (2)
  - Cardio-respiratory arrest [Fatal]
  - Pneumonia [Fatal]
